FAERS Safety Report 15081271 (Version 1)
Quarter: 2018Q2

REPORT INFORMATION
  Report Type: Spontaneous
  Country: US (occurrence: US)
  Receive Date: 20180628
  Receipt Date: 20180628
  Transmission Date: 20180711
  Serious: No
  Sender: FDA-Public Use
  Company Number: US-ACCORD-066469

PATIENT
  Age: 54 Year
  Sex: Female
  Weight: 81.65 kg

DRUGS (1)
  1. CLONAZEPAM ACCORD [Suspect]
     Active Substance: CLONAZEPAM
     Indication: ANXIETY
     Dosage: STRENGTH: 0.5 MG
     Route: 048
     Dates: start: 201803, end: 20180411

REACTIONS (6)
  - Skin exfoliation [Recovered/Resolved]
  - Fatigue [Unknown]
  - Rash [Recovered/Resolved]
  - Product substitution issue [Unknown]
  - Eye pruritus [Recovered/Resolved]
  - Depression [Unknown]
